FAERS Safety Report 7052671-1 (Version None)
Quarter: 2010Q4

REPORT INFORMATION
  Report Type: 
  Country: None (occurrence: None)
  Receive Date: 20101008
  Receipt Date: 20100830
  Transmission Date: 20110411
  Serious: Yes (Other)
  Sender: FDA-Public Use
  Company Number: A0864833A

PATIENT
  Age: 84 Year
  Sex: Female

DRUGS (1)
  1. ASPIRIN [Suspect]
     Indication: COAGULOPATHY

REACTIONS (6)
  - CONSTIPATION [None]
  - INTESTINAL OBSTRUCTION [None]
  - MEDICATION RESIDUE [None]
  - OBSTRUCTION GASTRIC [None]
  - PRODUCT QUALITY ISSUE [None]
  - PRODUCT SOLUBILITY ABNORMAL [None]
